FAERS Safety Report 7589501-5 (Version None)
Quarter: 2011Q3

REPORT INFORMATION
  Report Type: 
  Country: None (occurrence: None)
  Receive Date: 20110705
  Receipt Date: 20110628
  Transmission Date: 20111222
  Serious: Yes (Hospitalization, Other)
  Sender: FDA-Public Use
  Company Number: US-JNJFOC-20110403840

PATIENT
  Sex: Female
  Weight: 90.72 kg

DRUGS (8)
  1. GENTAMICIN [Concomitant]
     Route: 065
  2. CLINDAMYCIN [Concomitant]
     Route: 065
  3. TOPAMAX [Suspect]
     Route: 048
     Dates: start: 20091001
  4. OMEPRAZOLE [Concomitant]
     Route: 048
  5. ELAVIL [Concomitant]
     Route: 065
  6. TOPAMAX [Suspect]
     Indication: MIGRAINE PROPHYLAXIS
     Route: 048
  7. LEXAPRO [Concomitant]
     Route: 048
     Dates: end: 20110309
  8. AMPICILLIN SODIUM [Concomitant]
     Route: 065

REACTIONS (3)
  - ARRESTED LABOUR [None]
  - URINARY TRACT INFECTION [None]
  - MATERNAL EXPOSURE DURING PREGNANCY [None]
